FAERS Safety Report 25466708 (Version 2)
Quarter: 2025Q3

REPORT INFORMATION
  Report Type: Spontaneous
  Country: US (occurrence: US)
  Receive Date: 20250623
  Receipt Date: 20250718
  Transmission Date: 20251020
  Serious: Yes (Other)
  Sender: ROCHE
  Company Number: US-ROCHE-10000315805

PATIENT
  Age: 41 Year
  Sex: Female

DRUGS (1)
  1. MYCOPHENOLATE MOFETIL [Suspect]
     Active Substance: MYCOPHENOLATE MOFETIL
     Indication: Metastatic malignant melanoma
     Route: 065

REACTIONS (4)
  - Hepatitis [Unknown]
  - Bronchopulmonary aspergillosis [Unknown]
  - Off label use [Unknown]
  - Leukopenia [Unknown]
